FAERS Safety Report 26196955 (Version 1)
Quarter: 2025Q4

REPORT INFORMATION
  Report Type: Spontaneous
  Country: US (occurrence: US)
  Receive Date: 20251224
  Receipt Date: 20251224
  Transmission Date: 20260118
  Serious: Yes (Other)
  Sender: TAKEDA
  Company Number: US-TAKEDA-2025TUS072666

PATIENT
  Age: 55 Year
  Sex: Male

DRUGS (1)
  1. FRUQUINTINIB [Suspect]
     Active Substance: FRUQUINTINIB
     Indication: Colorectal cancer metastatic
     Dosage: 5 MILLIGRAM

REACTIONS (8)
  - Cytopenia [Unknown]
  - Cardiotoxicity [Unknown]
  - Neuropathy peripheral [Unknown]
  - Hyperbilirubinaemia [Recovered/Resolved]
  - Device colour issue [Recovered/Resolved]
  - Alopecia [Unknown]
  - Nausea [Unknown]
  - Diarrhoea [Unknown]
